FAERS Safety Report 9561756 (Version 1)
Quarter: 2013Q3

REPORT INFORMATION
  Report Type: Spontaneous
  Country: US (occurrence: None)
  Receive Date: 20130821
  Receipt Date: 20130821
  Transmission Date: 20140515
  Serious: Yes (Other)
  Sender: FDA-Public Use
  Company Number: 1000045192

PATIENT
  Age: 88 Year
  Sex: Male

DRUGS (2)
  1. TUDORZA PRESSAIR [Suspect]
  2. TUDORZA PRESSAIR [Suspect]

REACTIONS (1)
  - Pruritus [None]
